FAERS Safety Report 14719094 (Version 1)
Quarter: 2018Q2

REPORT INFORMATION
  Report Type: Spontaneous
  Country: BR (occurrence: BR)
  Receive Date: 20180405
  Receipt Date: 20180405
  Transmission Date: 20180711
  Serious: Yes (Hospitalization, Other)
  Sender: FDA-Public Use
  Company Number: BR-ALVOGEN-2018-ALVOGEN-095706

PATIENT
  Age: 932 Month
  Sex: Female

DRUGS (2)
  1. HYDROCHLOROTHIAZIDE/OLMESARTAN MEDOXOMIL [Concomitant]
     Indication: BLOOD PRESSURE ABNORMAL
     Dosage: 40/25MG
     Dates: start: 2010, end: 201711
  2. ATENOLOL. [Suspect]
     Active Substance: ATENOLOL
     Indication: PRODUCT USED FOR UNKNOWN INDICATION
     Dosage: (MANUFACTURER AND DOSE NOT INFORMED)
     Route: 048
     Dates: end: 201711

REACTIONS (5)
  - Abdominal discomfort [Unknown]
  - Dysphagia [Unknown]
  - Blood sodium decreased [Unknown]
  - Pulse abnormal [Unknown]
  - Cough [Unknown]

NARRATIVE: CASE EVENT DATE: 201711
